FAERS Safety Report 7460225-8 (Version None)
Quarter: 2011Q2

REPORT INFORMATION
  Report Type: 
  Country: None (occurrence: None)
  Receive Date: 20110505
  Receipt Date: 20110504
  Transmission Date: 20111010
  Serious: Yes (Hospitalization)
  Sender: FDA-Public Use
  Company Number: IT-ROCHE-774972

PATIENT
  Sex: Female

DRUGS (4)
  1. ASPIRIN [Concomitant]
     Route: 048
  2. ROCEPHIN [Suspect]
     Dosage: FREQUENCY: ONCE
     Route: 030
     Dates: start: 20110316, end: 20110316
  3. PANTORC [Concomitant]
     Route: 048
  4. ATENOLOL [Concomitant]
     Route: 048

REACTIONS (4)
  - DYSPNOEA [None]
  - URTICARIA [None]
  - HYPERHIDROSIS [None]
  - BRONCHOSPASM [None]
